FAERS Safety Report 24462671 (Version 1)
Quarter: 2024Q4

REPORT INFORMATION
  Report Type: Spontaneous
  Country: US (occurrence: US)
  Receive Date: 20241018
  Receipt Date: 20241018
  Transmission Date: 20250114
  Serious: No
  Sender: CIPLA
  Company Number: US-CIPLA LTD.-2024US03250

PATIENT

DRUGS (1)
  1. AMLODIPINE [Suspect]
     Active Substance: AMLODIPINE BESYLATE
     Indication: Product used for unknown indication
     Dosage: UNK
     Route: 065
     Dates: start: 2024

REACTIONS (8)
  - Lung disorder [Unknown]
  - Cardiac ventricular disorder [Unknown]
  - Extrasystoles [Unknown]
  - Vision blurred [Unknown]
  - Photophobia [Unknown]
  - Dizziness [Unknown]
  - Fatigue [Unknown]
  - Dyspnoea [Unknown]

NARRATIVE: CASE EVENT DATE: 20240101
